FAERS Safety Report 14641720 (Version 2)
Quarter: 2018Q2

REPORT INFORMATION
  Report Type: Spontaneous
  Country: JP (occurrence: JP)
  Receive Date: 20180315
  Receipt Date: 20180405
  Transmission Date: 20180711
  Serious: Yes (Death, Hospitalization, Other)
  Sender: FDA-Public Use
  Company Number: JP-DSJP-DSJ-2018-104281

PATIENT

DRUGS (23)
  1. LIXIANA TABLETS 30MG [Suspect]
     Active Substance: EDOXABAN TOSYLATE
     Indication: DEEP VEIN THROMBOSIS
  2. ALLOPURINOL. [Concomitant]
     Active Substance: ALLOPURINOL
     Dosage: 100 MG, QD
     Route: 048
     Dates: end: 20180219
  3. LOSARHYD [Concomitant]
     Active Substance: HYDROCHLOROTHIAZIDE\LOSARTAN POTASSIUM
     Dosage: 50MG/12.5MG, QD
     Route: 048
     Dates: end: 20180202
  4. LIXIANA TABLETS 30MG [Suspect]
     Active Substance: EDOXABAN TOSYLATE
     Indication: PULMONARY EMBOLISM
     Dosage: 15 MG, QD
     Route: 048
     Dates: start: 20180110, end: 20180130
  5. FUROSEMIDE. [Concomitant]
     Active Substance: FUROSEMIDE
     Dosage: 20 MG, QD
     Route: 048
     Dates: end: 20180219
  6. CARBAZOCHROME SODIUM SULFONATE [Concomitant]
     Active Substance: CARBAZOCHROME SODIUM SULFONATE
     Dosage: 30 MG, TID
     Route: 048
     Dates: end: 20180219
  7. GLIMEPIRIDE TOWA [Concomitant]
     Dosage: 3 MG, QD
     Route: 048
     Dates: end: 20180219
  8. CALONAL [Concomitant]
     Active Substance: ACETAMINOPHEN
     Dosage: 400 MG, BID
     Route: 048
     Dates: end: 20180219
  9. VITAMEDIN INTRAVENOUS [Concomitant]
     Active Substance: CYANOCOBALAMIN\PYRIDOXINE HYDROCHLORIDE\THIAMINE
     Dosage: 1 DF, QD
     Route: 041
     Dates: start: 20180127, end: 20180219
  10. LIXIANA TABLETS 30MG [Suspect]
     Active Substance: EDOXABAN TOSYLATE
     Indication: JOINT ARTHROPLASTY
     Dosage: 30 MG, QD
     Route: 048
     Dates: start: 20171227, end: 20180109
  11. BFLUID [Concomitant]
     Active Substance: AMINO ACIDS\DEXTROSE\ELECTROLYTES NOS\VITAMINS
     Dosage: 500 ML, QD
     Route: 041
     Dates: start: 20180127, end: 20180207
  12. VEEN D [Concomitant]
     Active Substance: CALCIUM CHLORIDE\DEXTROSE\POTASSIUM CHLORIDE\SODIUM ACETATE\SODIUM CHLORIDE
     Dosage: 500 ML, QD
     Route: 041
     Dates: start: 20180129, end: 20180204
  13. HISHIPHAGEN C [Concomitant]
     Dosage: 4 DF, QD
     Route: 042
     Dates: start: 20180129, end: 20180206
  14. MEROPENEM NP [Concomitant]
     Dosage: 0.5 G, BID
     Route: 041
     Dates: start: 20180127, end: 20180202
  15. HEPARIN NA LOCK [Concomitant]
     Active Substance: HEPARIN SODIUM
     Dosage: 10 ML, QD
     Route: 042
     Dates: start: 20180125, end: 20180219
  16. NESINA [Concomitant]
     Active Substance: ALOGLIPTIN BENZOATE
     Dosage: 12.5 MG, QD
     Route: 048
     Dates: end: 20180219
  17. BISOPROLOL FUMARATE. [Concomitant]
     Active Substance: BISOPROLOL FUMARATE
     Dosage: 2.5 MG, BID
     Route: 048
     Dates: end: 20180219
  18. AMLODIPINE MEIJI [Concomitant]
     Active Substance: AMLODIPINE BESYLATE
     Dosage: 2.5 MG, QD
     Route: 048
     Dates: end: 20180219
  19. PIOGLITAZONE                       /01460202/ [Concomitant]
     Active Substance: PIOGLITAZONE HYDROCHLORIDE
     Dosage: 15 MG, BID
     Route: 048
     Dates: end: 20180219
  20. SPIRONOLACTONE. [Concomitant]
     Active Substance: SPIRONOLACTONE
     Dosage: 25 MG, BID
     Route: 048
     Dates: end: 20180219
  21. IMIDAPRIL HYDROCHLORIDE [Concomitant]
     Active Substance: IMIDAPRIL HYDROCHLORIDE
     Dosage: 5 MG, BID
     Route: 048
     Dates: end: 20180219
  22. MAGMITT [Concomitant]
     Active Substance: MAGNESIUM OXIDE
     Dosage: 250 MG, TID
     Route: 048
     Dates: end: 20180219
  23. NORMAL SALINE [Concomitant]
     Active Substance: SODIUM CHLORIDE
     Dosage: 100 ML, BID
     Route: 041
     Dates: start: 20180127, end: 20180202

REACTIONS (5)
  - Coagulopathy [Fatal]
  - Hepatic function abnormal [Fatal]
  - Rash [Recovering/Resolving]
  - Pyrexia [Unknown]
  - Renal impairment [Fatal]

NARRATIVE: CASE EVENT DATE: 20180110
